FAERS Safety Report 22040039 (Version 2)
Quarter: 2023Q1

REPORT INFORMATION
  Report Type: Spontaneous
  Country: BE (occurrence: BE)
  Receive Date: 20230227
  Receipt Date: 20230315
  Transmission Date: 20230417
  Serious: Yes (Death, Other)
  Sender: FDA-Public Use
  Company Number: BE-AMGEN-BELSP2023032729

PATIENT

DRUGS (3)
  1. BEVACIZUMAB [Suspect]
     Active Substance: BEVACIZUMAB
     Indication: Glioma
     Dosage: UNK
     Route: 065
  2. CARBOPLATIN [Concomitant]
     Active Substance: CARBOPLATIN
     Indication: Glioma
     Dosage: UNK
     Route: 065
  3. LOMUSTINE [Concomitant]
     Active Substance: LOMUSTINE
     Indication: Glioma
     Dosage: UNK
     Route: 065

REACTIONS (9)
  - Death [Fatal]
  - Glioma [Unknown]
  - Embolism [Unknown]
  - Thrombocytopenia [Unknown]
  - Neutropenia [Unknown]
  - Haematoma [Unknown]
  - Proteinuria [Unknown]
  - Therapy partial responder [Unknown]
  - Therapy non-responder [Unknown]
